FAERS Safety Report 8123151-7 (Version None)
Quarter: 2012Q1

REPORT INFORMATION
  Report Type: 
  Country: None (occurrence: None)
  Receive Date: 20120206
  Receipt Date: 20120123
  Transmission Date: 20120608
  Serious: Yes (Hospitalization, Disabling, Other)
  Sender: FDA-Public Use
  Company Number: 2010MA005233

PATIENT
  Sex: Female
  Weight: 79.3795 kg

DRUGS (65)
  1. AMOXICILLIN [Concomitant]
  2. LEVODOPA [Concomitant]
  3. FOLTX [Concomitant]
  4. INDERAL [Concomitant]
  5. PREMARIN [Concomitant]
  6. AMANTADINE HCL [Concomitant]
  7. DEPO-MEDROL [Concomitant]
  8. MYLANTA [Concomitant]
  9. RIOPAN [Concomitant]
  10. PROPOXYPHENE HYDROCHLORIDE [Concomitant]
  11. FELDENE [Concomitant]
  12. LIPITOR [Concomitant]
  13. SODIUM BICARBONATE [Concomitant]
  14. ZEMPLAR [Concomitant]
  15. AXID [Concomitant]
  16. CARDIZEM [Concomitant]
  17. KLONOPIN [Concomitant]
  18. TRAZODONE HCL [Concomitant]
  19. VENOFER [Concomitant]
  20. APAP TAB [Concomitant]
  21. DIOVAN [Concomitant]
  22. DESYREL [Concomitant]
  23. TOLECTIN [Concomitant]
  24. ASCORBIC ACID [Concomitant]
  25. METOCLOPRAMIDE [Suspect]
     Indication: ABDOMINAL PAIN
     Dosage: 10 MG;QID;PO
     Route: 048
     Dates: start: 19981219, end: 20091031
  26. BETAMETHASONE [Concomitant]
  27. DAILY-VITE [Concomitant]
  28. FUROSEMIDE [Concomitant]
  29. PROVERA [Concomitant]
  30. SULINDAC [Concomitant]
  31. ASPIRIN [Concomitant]
  32. AZITHROMYCIN [Concomitant]
  33. MIRALAX [Concomitant]
  34. NAPROSYN [Concomitant]
  35. ALDACTAZIDE [Concomitant]
  36. ATIVAN [Concomitant]
  37. DOCUSATE SODIUM [Concomitant]
  38. SENNA [Concomitant]
  39. DOXEPIN HCL [Concomitant]
  40. FOLBIC [Concomitant]
  41. CIPROFLOXACIN [Concomitant]
  42. GLUCOPHAGE [Concomitant]
  43. TIGAN [Concomitant]
  44. VITAMIN B-12 [Concomitant]
  45. HYDROCODONE [Concomitant]
  46. MAG-SR [Concomitant]
  47. METOCLOPRAMIDE [Concomitant]
  48. INFLUENZA [Concomitant]
  49. ZOFRAN [Concomitant]
  50. CARBIDOPA [Concomitant]
  51. KLOR-CON [Concomitant]
  52. AMBIEN [Concomitant]
  53. BENZTROPINE MESYLATE [Concomitant]
  54. CLONAZEPAM [Concomitant]
  55. FEMSTAT [Concomitant]
  56. MEGESTROL ACETATE [Concomitant]
  57. NITROGLYCERIN [Concomitant]
  58. TAGAMET [Concomitant]
  59. ACTOS [Concomitant]
  60. CKITRUNAZIKE [Concomitant]
  61. TOPAMAX [Concomitant]
  62. CARAFATE [Concomitant]
  63. FLONASE [Concomitant]
  64. METRONIDAZOLE [Concomitant]
  65. PROZAC [Concomitant]

REACTIONS (96)
  - PARKINSONIAN REST TREMOR [None]
  - INSOMNIA [None]
  - HYPOKALAEMIA [None]
  - COGNITIVE DISORDER [None]
  - CONVULSION [None]
  - VOMITING [None]
  - RETCHING [None]
  - DECREASED APPETITE [None]
  - CHAPPED LIPS [None]
  - ABDOMINAL PAIN UPPER [None]
  - BODY HEIGHT DECREASED [None]
  - OSTEOARTHRITIS [None]
  - WRIST FRACTURE [None]
  - HYPOKINESIA [None]
  - ASTHENIA [None]
  - ANKLE FRACTURE [None]
  - FALL [None]
  - URINARY TRACT INFECTION [None]
  - VITAMIN B12 DEFICIENCY [None]
  - COUGH [None]
  - TRANSFERRIN SATURATION DECREASED [None]
  - JOINT CREPITATION [None]
  - HYPERHIDROSIS [None]
  - MUSCLE SPASMS [None]
  - LYMPHADENOPATHY [None]
  - EMOTIONAL DISORDER [None]
  - FUNGAL INFECTION [None]
  - IMPAIRED GASTRIC EMPTYING [None]
  - CARPAL TUNNEL SYNDROME [None]
  - DEHYDRATION [None]
  - DIABETIC GASTROPATHY [None]
  - HYPERTENSIVE HEART DISEASE [None]
  - IRON DEFICIENCY ANAEMIA [None]
  - PRESYNCOPE [None]
  - DYSPNOEA [None]
  - CHILLS [None]
  - HYPOAESTHESIA [None]
  - WEIGHT DECREASED [None]
  - TREMOR [None]
  - HIATUS HERNIA [None]
  - CEREBRAL SMALL VESSEL ISCHAEMIC DISEASE [None]
  - CONSTIPATION [None]
  - HYPERCHOLESTEROLAEMIA [None]
  - MEMORY IMPAIRMENT [None]
  - MUSCULOSKELETAL STIFFNESS [None]
  - CHEST PAIN [None]
  - FATIGUE [None]
  - DIABETIC NEPHROPATHY [None]
  - PRURITUS [None]
  - DIZZINESS [None]
  - MASTICATION DISORDER [None]
  - DYSPEPSIA [None]
  - PAIN IN EXTREMITY [None]
  - TRICUSPID VALVE INCOMPETENCE [None]
  - TARDIVE DYSKINESIA [None]
  - GAIT DISTURBANCE [None]
  - DEPRESSION [None]
  - ARTHRITIS [None]
  - RENAL FAILURE CHRONIC [None]
  - DYSPNOEA EXERTIONAL [None]
  - DISTURBANCE IN ATTENTION [None]
  - MASKED FACIES [None]
  - ELECTROCARDIOGRAM T WAVE ABNORMAL [None]
  - ECONOMIC PROBLEM [None]
  - ANXIETY [None]
  - HYPERTENSION [None]
  - PEPTIC ULCER [None]
  - RENAL FAILURE [None]
  - PARKINSONISM [None]
  - PARKINSON'S DISEASE [None]
  - DYSLIPIDAEMIA [None]
  - FIBULA FRACTURE [None]
  - ANAEMIA OF CHRONIC DISEASE [None]
  - COLD SWEAT [None]
  - CRYING [None]
  - ABDOMINAL TENDERNESS [None]
  - PAIN [None]
  - ANTINUCLEAR ANTIBODY POSITIVE [None]
  - DIVERTICULUM [None]
  - MITRAL VALVE INCOMPETENCE [None]
  - PANIC ATTACK [None]
  - RECTAL HAEMORRHAGE [None]
  - DIABETES MELLITUS [None]
  - ATRIAL FIBRILLATION [None]
  - DEMENTIA [None]
  - HYPERLIPIDAEMIA [None]
  - TENDON RUPTURE [None]
  - STRESS [None]
  - JOINT ARTHROPLASTY [None]
  - CEREBROVASCULAR ACCIDENT [None]
  - ABDOMINAL DISCOMFORT [None]
  - NAUSEA [None]
  - TACHYCARDIA [None]
  - LIP DRY [None]
  - PALPITATIONS [None]
  - AORTIC VALVE INCOMPETENCE [None]
